FAERS Safety Report 17976845 (Version 1)
Quarter: 2020Q3

REPORT INFORMATION
  Report Type: Spontaneous
  Country: CN (occurrence: CN)
  Receive Date: 20200703
  Receipt Date: 20200703
  Transmission Date: 20201103
  Serious: Yes (Other)
  Sender: FDA-Public Use
  Company Number: CN-009507513-2006CHN010615

PATIENT
  Age: 54 Year
  Sex: Female
  Weight: 58 kg

DRUGS (2)
  1. TIENAM [Suspect]
     Active Substance: CILASTATIN SODIUM\IMIPENEM
     Indication: URINARY TRACT INFECTION
     Dosage: POWDER, 1 G, BID, IVGTT
     Route: 042
     Dates: start: 20200605, end: 20200607
  2. SODIUM CHLORIDE. [Concomitant]
     Active Substance: SODIUM CHLORIDE
     Indication: URINARY TRACT INFECTION
     Dosage: 100 ML, BID, IVGTT, SOLVENT
     Route: 042
     Dates: start: 20200605, end: 20200607

REACTIONS (3)
  - Face oedema [Recovered/Resolved]
  - Hot flush [Recovered/Resolved]
  - Erythema [Recovered/Resolved]

NARRATIVE: CASE EVENT DATE: 20200605
